FAERS Safety Report 10866523 (Version 1)
Quarter: 2015Q1

REPORT INFORMATION
  Report Type: Spontaneous
  Country: US (occurrence: None)
  Receive Date: 20150220
  Receipt Date: 20150220
  Transmission Date: 20150721
  Serious: Yes (Death)
  Sender: FDA-Public Use
  Company Number: IPC201502-000091

PATIENT
  Age: 19 Year
  Sex: Male

DRUGS (1)
  1. METFORMIN HYDROCHLORIDE. [Suspect]
     Active Substance: METFORMIN HYDROCHLORIDE

REACTIONS (4)
  - Retching [None]
  - Leukaemoid reaction [None]
  - Overdose [None]
  - Haemodialysis [None]
